FAERS Safety Report 7606002-6 (Version None)
Quarter: 2011Q3

REPORT INFORMATION
  Report Type: 
  Country: None (occurrence: None)
  Receive Date: 20110713
  Receipt Date: 20110629
  Transmission Date: 20111222
  Serious: Yes (Hospitalization, Other)
  Sender: FDA-Public Use
  Company Number: PHFR2011IE02274

PATIENT
  Sex: Female
  Weight: 100 kg

DRUGS (4)
  1. CLOZAPINE [Suspect]
     Route: 048
     Dates: start: 20110330
  2. PHENOBARBITAL TAB [Concomitant]
  3. CLOZAPINE [Suspect]
     Indication: SCHIZOPHRENIA
     Dosage: 400 MG, DAILY
     Route: 048
     Dates: start: 20021003, end: 20110328
  4. VALPROATE SODIUM [Concomitant]
     Indication: EPILEPSY
     Dosage: 1600 MG, DAILY
     Route: 048
     Dates: start: 20020101

REACTIONS (4)
  - EPILEPSY [None]
  - ANTIPSYCHOTIC DRUG LEVEL BELOW THERAPEUTIC [None]
  - DUODENAL ULCER [None]
  - ABDOMINAL DISCOMFORT [None]
